FAERS Safety Report 18589643 (Version 2)
Quarter: 2021Q1

REPORT INFORMATION
  Report Type: Spontaneous
  Country: US (occurrence: US)
  Receive Date: 20201208
  Receipt Date: 20210104
  Transmission Date: 20210419
  Serious: Yes (Other)
  Sender: FDA-Public Use
  Company Number: US-ADVANZ PHARMA-202011010438

PATIENT

DRUGS (9)
  1. LAMICTAL [Interacting]
     Active Substance: LAMOTRIGINE
     Dosage: 200 MG, BID
  2. ESCITALOPRAM [Interacting]
     Active Substance: ESCITALOPRAM OXALATE
     Indication: ANXIETY
     Dosage: 20 MG, QD, IN MORNINGS
  3. NURTEC ODT [Interacting]
     Active Substance: RIMEGEPANT SULFATE
     Indication: MIGRAINE
     Dosage: 75 MG, QD
     Route: 048
     Dates: start: 20201029
  4. KEPPRA [Interacting]
     Active Substance: LEVETIRACETAM
     Dosage: 1000 MG, BID
     Dates: end: 2020
  5. CLOMIPERIDE (GLIMEPERIDE) [Interacting]
     Active Substance: GLIMEPIRIDE
     Indication: DIABETES MELLITUS
     Dosage: UNK
  6. DIGOXIN. [Suspect]
     Active Substance: DIGOXIN
     Indication: CARDIAC DISORDER
     Dosage: 250 UG
     Route: 065
  7. SIMVASTATIN. [Interacting]
     Active Substance: SIMVASTATIN
     Dosage: UNK
  8. KEPPRA [Interacting]
     Active Substance: LEVETIRACETAM
     Dosage: BID (1 TABLET IN THE MORNING AND 1.5 TABLETS IN THE EVENING)
     Dates: start: 2020
  9. CARVEDILOL. [Interacting]
     Active Substance: CARVEDILOL
     Dosage: UNK

REACTIONS (3)
  - Petit mal epilepsy [Recovered/Resolved]
  - Drug interaction [Unknown]
  - Dry mouth [Not Recovered/Not Resolved]

NARRATIVE: CASE EVENT DATE: 20201029
